FAERS Safety Report 6209098-1 (Version None)
Quarter: 2009Q2

REPORT INFORMATION
  Report Type: 
  Country: None (occurrence: None)
  Receive Date: 20090529
  Receipt Date: 20090430
  Transmission Date: 20091009
  Serious: Yes (Death, Other)
  Sender: FDA-Public Use
  Company Number: KR-PFIZER INC-2009198795

PATIENT
  Age: 66 Year

DRUGS (3)
  1. BLINDED *PLACEBO [Suspect]
     Indication: SYSTEMIC CANDIDA
     Dosage: UNK
     Dates: start: 20090307, end: 20090324
  2. BLINDED ANIDULAFUNGIN [Suspect]
     Indication: SYSTEMIC CANDIDA
     Dosage: UNK
     Dates: start: 20090307, end: 20090324
  3. VORICONAZOLE [Suspect]
     Dosage: 188.1 MG, 2X/DAY
     Route: 042
     Dates: start: 20090307

REACTIONS (6)
  - CONDITION AGGRAVATED [None]
  - HEART RATE DECREASED [None]
  - PLATELET COUNT DECREASED [None]
  - PNEUMONIA [None]
  - SEPTIC SHOCK [None]
  - STAPHYLOCOCCAL BACTERAEMIA [None]
